FAERS Safety Report 9422626 (Version 1)
Quarter: 2013Q3

REPORT INFORMATION
  Report Type: Spontaneous
  Country: US (occurrence: US)
  Receive Date: 20130726
  Receipt Date: 20130726
  Transmission Date: 20140515
  Serious: Yes (Hospitalization)
  Sender: FDA-Public Use
  Company Number: US-SANOFI-AVENTIS-2013SA073100

PATIENT
  Age: 41 Year
  Sex: Male

DRUGS (2)
  1. ZOLPIDEM [Suspect]
     Indication: INSOMNIA
     Route: 048
  2. INTERFERON ALFA-2B [Concomitant]
     Indication: HEPATITIS C

REACTIONS (8)
  - Hepatic encephalopathy [Recovering/Resolving]
  - Stupor [Recovering/Resolving]
  - Disorientation [Recovering/Resolving]
  - Mental status changes [Recovering/Resolving]
  - Lethargy [Recovering/Resolving]
  - Incoherent [Recovering/Resolving]
  - Sedation [Recovering/Resolving]
  - Aggression [Recovering/Resolving]
